FAERS Safety Report 4312051-6 (Version None)
Quarter: 2004Q1

REPORT INFORMATION
  Report Type: 
  Country: None (occurrence: None)
  Receive Date: 20040303
  Receipt Date: 20040223
  Transmission Date: 20041129
  Serious: Yes (Other)
  Sender: FDA-Public Use
  Company Number: 2004199220JP

PATIENT
  Age: 76 Year
  Sex: Male

DRUGS (10)
  1. HALCION [Suspect]
     Dosage: SEE IMAGE
  2. CARVEDILOL [Suspect]
     Dosage: ORAL
     Route: 048
  3. ALDACTONE [Concomitant]
  4. SELBEX (TEPRENONE) [Concomitant]
  5. BLOPRESS (CANDESARTAN CILEXETIL) [Concomitant]
  6. WARFARIN SODIUM [Concomitant]
  7. LASIX [Concomitant]
  8. ZYLORIC [Concomitant]
  9. ALTAT (ROXATIDINE ACETATE HYDRCHLORIDE) [Concomitant]
  10. CALCIUM POLYSTYRENE SULFONATE (CALCIUM POLYSTYRENE SULFONATE) [Concomitant]

REACTIONS (2)
  - BRADYCARDIA [None]
  - RESPIRATORY DEPRESSION [None]
